FAERS Safety Report 6670650-0 (Version None)
Quarter: 2010Q2

REPORT INFORMATION
  Report Type: 
  Country: None (occurrence: None)
  Receive Date: 20100405
  Receipt Date: 20100325
  Transmission Date: 20101027
  Serious: Yes (Other)
  Sender: FDA-Public Use
  Company Number: B0644561A

PATIENT
  Age: 15 Year
  Sex: Male

DRUGS (6)
  1. HYDROCORTISONE [Suspect]
     Indication: CHEMOTHERAPY
     Dosage: INTRATHECAL
     Route: 037
  2. CYTARABINE [Suspect]
     Indication: CHEMOTHERAPY
     Dosage: INTRATHECAL
     Route: 037
  3. METHOTREXATE [Suspect]
     Indication: CHEMOTHERAPY
     Dosage: INTRATHECAL
     Route: 037
  4. RITUXAN [Suspect]
     Indication: CHEMOTHERAPY
     Dosage: INTRATHECAL
     Route: 037
  5. DEXAMETHASONE [Suspect]
     Indication: CHEMOTHERAPY
  6. CYCLOPHOSPHAMIDE [Suspect]
     Indication: CHEMOTHERAPY

REACTIONS (1)
  - NEPHROPATHY TOXIC [None]
